FAERS Safety Report 19583507 (Version 1)
Quarter: 2021Q3

REPORT INFORMATION
  Report Type: Spontaneous
  Country: US (occurrence: US)
  Receive Date: 20210720
  Receipt Date: 20210720
  Transmission Date: 20211014
  Serious: No
  Sender: FDA-Public Use
  Company Number: None

PATIENT
  Age: 59 Year
  Sex: Female
  Weight: 55 kg

DRUGS (9)
  1. TURMERIC 400MG [Concomitant]
  2. XGEVA [Concomitant]
     Active Substance: DENOSUMAB
  3. BENADRYL 25MG [Concomitant]
  4. VITAMIN B12 3000MCG [Concomitant]
  5. LIDOCAINE 4% [Concomitant]
     Active Substance: LIDOCAINE
  6. VERZENIO [Suspect]
     Active Substance: ABEMACICLIB
     Indication: BREAST CANCER
     Route: 048
     Dates: start: 20210302, end: 20210720
  7. VITAMIN D 1.25MG [Concomitant]
  8. K?PHOS 500MG [Concomitant]
  9. LETROZOLE 2.5MG [Concomitant]
     Active Substance: LETROZOLE

REACTIONS (1)
  - Disease progression [None]

NARRATIVE: CASE EVENT DATE: 20210720
